FAERS Safety Report 21490999 (Version 6)
Quarter: 2023Q1

REPORT INFORMATION
  Report Type: Spontaneous
  Country: US (occurrence: US)
  Receive Date: 20221021
  Receipt Date: 20230123
  Transmission Date: 20230417
  Serious: No
  Sender: FDA-Public Use
  Company Number: US-NOVARTISTESTPH-NVSC2022US236379

PATIENT
  Sex: Female

DRUGS (2)
  1. XIIDRA [Suspect]
     Active Substance: LIFITEGRAST
     Indication: Product used for unknown indication
     Dosage: 5 UNK
     Route: 047
  2. XIIDRA [Suspect]
     Active Substance: LIFITEGRAST
     Dosage: 5 %, BID (IN BOTH EYES)
     Route: 047
     Dates: start: 20220831

REACTIONS (5)
  - Product label issue [Unknown]
  - Product packaging issue [Unknown]
  - Drug intolerance [Unknown]
  - Eye pain [Unknown]
  - Eye irritation [Unknown]
